FAERS Safety Report 7919372-6 (Version None)
Quarter: 2011Q4

REPORT INFORMATION
  Report Type: 
  Country: None (occurrence: None)
  Receive Date: 20111117
  Receipt Date: 20111109
  Transmission Date: 20120403
  Serious: Yes (Other)
  Sender: FDA-Public Use
  Company Number: US-JNJFOC-20111104340

PATIENT
  Sex: Female
  Weight: 48.99 kg

DRUGS (4)
  1. ACANYA [Concomitant]
     Indication: ACNE
     Route: 061
     Dates: start: 20090101
  2. ORTHO TRI-CYCLEN [Suspect]
     Route: 048
     Dates: start: 20090101, end: 20100901
  3. ATRALIN [Concomitant]
     Indication: ACNE
     Route: 061
     Dates: start: 20090101
  4. ORTHO TRI-CYCLEN [Suspect]
     Indication: CONTRACEPTION
     Route: 048
     Dates: start: 20101101

REACTIONS (2)
  - THERAPEUTIC RESPONSE UNEXPECTED [None]
  - POLYARTHRITIS [None]
